FAERS Safety Report 16718019 (Version 1)
Quarter: 2019Q3

REPORT INFORMATION
  Report Type: Spontaneous
  Country: US (occurrence: US)
  Receive Date: 20190819
  Receipt Date: 20190819
  Transmission Date: 20191005
  Serious: Yes (Other)
  Sender: FDA-Public Use
  Company Number: PHEH2019US033696

PATIENT
  Sex: Female

DRUGS (1)
  1. ENTRESTO [Suspect]
     Active Substance: SACUBITRIL\VALSARTAN
     Indication: PRODUCT USED FOR UNKNOWN INDICATION
     Dosage: 50 MG (24/26), BID
     Route: 065

REACTIONS (12)
  - Tinnitus [Unknown]
  - Hyperhidrosis [Unknown]
  - Thirst [Unknown]
  - Muscle spasms [Unknown]
  - Dry mouth [Unknown]
  - Myalgia [Unknown]
  - Decreased appetite [Unknown]
  - Weight decreased [Unknown]
  - Pruritus [Unknown]
  - Paraesthesia oral [Unknown]
  - Insomnia [Unknown]
  - Malaise [Unknown]
